FAERS Safety Report 8523913-8 (Version None)
Quarter: 2012Q3

REPORT INFORMATION
  Report Type: 
  Country: None (occurrence: None)
  Receive Date: 20120720
  Receipt Date: 20120601
  Transmission Date: 20120928
  Serious: No
  Sender: FDA-Public Use
  Company Number: US-BAYER-2012-054363

PATIENT
  Age: 63 Year
  Sex: Male
  Weight: 90.703 kg

DRUGS (3)
  1. FENOFIBRATE [Concomitant]
  2. SIMVASTATIN [Concomitant]
  3. ALEVE (CAPLET) [Suspect]
     Indication: ANALGESIC THERAPY
     Dosage: 1 TO 2 TAB, PRN
     Route: 048
     Dates: start: 20120501, end: 20120525

REACTIONS (4)
  - PRURITUS [None]
  - URTICARIA [None]
  - RASH [None]
  - HERPES ZOSTER [None]
